FAERS Safety Report 4635411-2 (Version None)
Quarter: 2005Q2

REPORT INFORMATION
  Report Type: 
  Country: None (occurrence: None)
  Receive Date: 20050414
  Receipt Date: 20050401
  Transmission Date: 20051028
  Serious: Yes (Other)
  Sender: FDA-Public Use
  Company Number: 2005055404

PATIENT
  Sex: Male

DRUGS (5)
  1. MAGNEX (SULBACTAM, CEFOPERAZONE) [Suspect]
     Indication: POSTOPERATIVE CARE
     Dosage: 2 GRAM (1 GRAM, BID), INTRAVENOUS
     Route: 042
  2. METRONIDAZOLE [Concomitant]
  3. AMIKACIN [Concomitant]
  4. PANTOPRAZOLE (PANTOPRAZOLE) [Concomitant]
  5. TRAMADOL HCL [Concomitant]

REACTIONS (2)
  - HAEMORRHAGE [None]
  - PROTHROMBIN TIME PROLONGED [None]
